FAERS Safety Report 5233176-7 (Version None)
Quarter: 2007Q1

REPORT INFORMATION
  Report Type: 
  Country: None (occurrence: None)
  Receive Date: 20061204
  Receipt Date: 20060731
  Transmission Date: 20070707
  Serious: No
  Sender: FDA-Public Use
  Company Number: 2006-BP-14860BP

PATIENT
  Age: 72 Year
  Sex: Female

DRUGS (8)
  1. SPIRIVA [Suspect]
     Indication: BRONCHIAL DISORDER
     Dosage: 18 MCG (18 MCG,1 IN 1 D),IH
     Route: 055
     Dates: start: 20050101
  2. SPIRIVA [Suspect]
  3. CLARITIN [Concomitant]
  4. SYNTHROID [Concomitant]
  5. ELAVIL [Concomitant]
  6. VITAMINS (DAILY VITAMINS) [Concomitant]
  7. BLOOD PRESSURE MEDICINE (ALL OTHER THERAPEUTIC PRODUCTS) [Concomitant]
  8. B12 SHOTS (CYANOCOBALAMIN-TANNIN COMPLEX) [Concomitant]

REACTIONS (3)
  - CHEST DISCOMFORT [None]
  - COUGH [None]
  - DYSGEUSIA [None]
